FAERS Safety Report 4925777-8 (Version None)
Quarter: 2006Q1

REPORT INFORMATION
  Report Type: 
  Country: None (occurrence: None)
  Receive Date: 20060228
  Receipt Date: 20050321
  Transmission Date: 20060701
  Serious: No
  Sender: FDA-Public Use
  Company Number: US-GLAXOSMITHKLINE-A0550607A

PATIENT
  Age: 53 Year
  Sex: Female

DRUGS (3)
  1. LAMICTAL [Suspect]
     Indication: BIPOLAR DISORDER
     Dosage: 100MG PER DAY
     Route: 048
  2. ESTRATEST [Concomitant]
  3. MULTI-VITAMIN [Concomitant]

REACTIONS (4)
  - ANAL DISCOMFORT [None]
  - LYMPHADENOPATHY [None]
  - PERIANAL ERYTHEMA [None]
  - PRURITUS ANI [None]
